FAERS Safety Report 7911604-3 (Version None)
Quarter: 2011Q4

REPORT INFORMATION
  Report Type: 
  Country: None (occurrence: None)
  Receive Date: 20111114
  Receipt Date: 20111103
  Transmission Date: 20120403
  Serious: Yes (Hospitalization)
  Sender: FDA-Public Use
  Company Number: NL-JNJFOC-20110500933

PATIENT
  Sex: Male
  Weight: 51.9 kg

DRUGS (4)
  1. REMICADE [Suspect]
     Route: 042
     Dates: start: 20101112
  2. REMICADE [Suspect]
     Route: 042
     Dates: start: 20110318
  3. AZATHIOPRINE [Suspect]
     Indication: PRODUCT USED FOR UNKNOWN INDICATION
  4. REMICADE [Suspect]
     Indication: CROHN'S DISEASE
     Route: 042
     Dates: start: 20100615

REACTIONS (1)
  - CROHN'S DISEASE [None]
